FAERS Safety Report 5061263-5 (Version None)
Quarter: 2006Q3

REPORT INFORMATION
  Report Type: 
  Country: None (occurrence: None)
  Receive Date: 20060721
  Receipt Date: 20060721
  Transmission Date: 20061208
  Serious: Yes (Other)
  Sender: FDA-Public Use
  Company Number: None

PATIENT
  Sex: Female
  Weight: 65.7716 kg

DRUGS (1)
  1. LIPITOR [Suspect]
     Indication: BLOOD CHOLESTEROL INCREASED
     Dosage: .5 MG DAILY
     Dates: start: 20010101, end: 20060101

REACTIONS (3)
  - ABASIA [None]
  - MYALGIA [None]
  - PAIN IN EXTREMITY [None]
